FAERS Safety Report 12244895 (Version 3)
Quarter: 2016Q2

REPORT INFORMATION
  Report Type: Spontaneous
  Country: JP (occurrence: JP)
  Receive Date: 20160407
  Receipt Date: 20160516
  Transmission Date: 20160815
  Serious: Yes (Hospitalization)
  Sender: FDA-Public Use
  Company Number: JP-SA-2016SA066851

PATIENT
  Age: 40 Year
  Sex: Male
  Weight: 57.7 kg

DRUGS (8)
  1. PLAVIX [Concomitant]
     Active Substance: CLOPIDOGREL BISULFATE
     Indication: CEREBRAL INFARCTION
     Route: 048
     Dates: start: 20121106
  2. RENAGEL [Concomitant]
     Active Substance: SEVELAMER HYDROCHLORIDE
     Indication: DIALYSIS
     Route: 048
  3. P-TOL [Concomitant]
     Indication: DIALYSIS
     Route: 048
  4. TEGRETOL [Concomitant]
     Active Substance: CARBAMAZEPINE
     Indication: PAIN
     Route: 048
  5. REGPARA [Concomitant]
     Active Substance: CINACALCET HYDROCHLORIDE
     Route: 048
  6. FABRAZYME [Suspect]
     Active Substance: AGALSIDASE BETA
     Indication: FABRY^S DISEASE
     Route: 042
     Dates: start: 20131106
  7. CALTAN [Concomitant]
     Active Substance: CALCIUM CARBONATE
     Indication: DIALYSIS
     Route: 048
  8. RIONA [Concomitant]
     Active Substance: FERRIC CITRATE ANHYDROUS
     Indication: DIALYSIS
     Route: 048

REACTIONS (2)
  - Groin pain [Recovering/Resolving]
  - Femoral neck fracture [Recovering/Resolving]

NARRATIVE: CASE EVENT DATE: 20160325
